FAERS Safety Report 17159263 (Version 1)
Quarter: 2019Q4

REPORT INFORMATION
  Report Type: Spontaneous
  Country: US (occurrence: US)
  Receive Date: 20191215
  Receipt Date: 20191215
  Transmission Date: 20200122
  Serious: Yes (Hospitalization)
  Sender: FDA-Public Use
  Company Number: None

PATIENT
  Age: 20 Year
  Sex: Male
  Weight: 85.1 kg

DRUGS (5)
  1. LAMOTRIGINE 50MG BID [Concomitant]
  2. LEVETIRACETAM 1000MG BID [Concomitant]
  3. MODAFINIL 200MG DAILY [Concomitant]
  4. RIVAROXABAN [Suspect]
     Active Substance: RIVAROXABAN
     Indication: DEEP VEIN THROMBOSIS
     Route: 048
     Dates: start: 20150315
  5. BACLOFEN 20MG QID [Concomitant]

REACTIONS (4)
  - Gastrointestinal haemorrhage [None]
  - Rectal haemorrhage [None]
  - Gastritis [None]
  - Haemorrhoids [None]

NARRATIVE: CASE EVENT DATE: 20160718
